FAERS Safety Report 12138866 (Version 4)
Quarter: 2016Q3

REPORT INFORMATION
  Report Type: Spontaneous
  Country: US (occurrence: US)
  Receive Date: 20160302
  Receipt Date: 20160901
  Transmission Date: 20161109
  Serious: Yes (Hospitalization)
  Sender: FDA-Public Use
  Company Number: US-ACTELION-A-US2016-132103

PATIENT
  Age: 66 Year
  Sex: Female

DRUGS (5)
  1. VELETRI [Suspect]
     Active Substance: EPOPROSTENOL
     Dosage: 20 NG/KG, PER MIN
     Route: 042
     Dates: start: 20131223
  2. LETAIRIS [Concomitant]
     Active Substance: AMBRISENTAN
  3. WARFARIN [Concomitant]
     Active Substance: WARFARIN
  4. VELETRI [Suspect]
     Active Substance: EPOPROSTENOL
     Indication: PULMONARY HYPERTENSION
     Dosage: 18 NG/KG, PER MIN
     Route: 042
     Dates: start: 20131223
  5. REVATIO [Concomitant]
     Active Substance: SILDENAFIL CITRATE

REACTIONS (13)
  - Reflux gastritis [Unknown]
  - Head injury [Unknown]
  - Seizure [Unknown]
  - Eye contusion [Unknown]
  - Blood potassium decreased [Unknown]
  - Headache [Unknown]
  - Nausea [Unknown]
  - Concussion [Unknown]
  - Deafness [Unknown]
  - Stress [Unknown]
  - Nasal injury [Unknown]
  - Diarrhoea [Unknown]
  - Syncope [Unknown]
